FAERS Safety Report 7644343 (Version 5)
Quarter: 2013Q4

REPORT INFORMATION
  Report Type: Spontaneous
  Country: US (occurrence: US)
  Receive Date: 20101028
  Receipt Date: 20131205
  Transmission Date: 20140711
  Serious: Yes (Hospitalization)
  Sender: FDA-Public Use
  Company Number: US-BAYER-201038346NA

PATIENT
  Age: 49 Year
  Sex: Female
  Weight: 81.63 kg

DRUGS (11)
  1. YAZ [Suspect]
     Indication: CONTRACEPTION
     Dosage: UNK
     Route: 048
     Dates: start: 200606, end: 20080615
  2. YAZ [Suspect]
     Indication: HEADACHE
     Dosage: UNK
     Dates: start: 200607, end: 2007
  3. EFFEXOR [Concomitant]
  4. DUONEB [Concomitant]
     Indication: WHEEZING
     Dosage: UNK
     Dates: start: 20080430
  5. BENADRYL [Concomitant]
     Indication: PRURITUS
  6. MIDRIN [Concomitant]
     Indication: TENSION HEADACHE
     Dosage: UNK UNK, Q4HR
     Route: 048
  7. PHENTERMINE [Concomitant]
     Indication: WEIGHT DECREASED
     Dosage: 37.5 MG, CONT
     Route: 048
     Dates: start: 20061026
  8. EFFEXOR XR [Concomitant]
     Indication: DEPRESSION
     Dosage: 150 MG, CONT
     Dates: start: 20070727
  9. EFFEXOR XR [Concomitant]
     Indication: ANXIETY
     Dosage: 225 MG, CONT
     Route: 048
     Dates: start: 20101018
  10. PRILOSEC [Concomitant]
     Dosage: UNK
     Dates: start: 20071121
  11. SIMVASTATIN [Concomitant]
     Dosage: 40 MG, PRN
     Route: 048
     Dates: start: 20101018

REACTIONS (6)
  - Cholelithiasis [Recovered/Resolved with Sequelae]
  - Pain [Recovered/Resolved with Sequelae]
  - Abdominal pain upper [Recovered/Resolved with Sequelae]
  - Cholecystitis [None]
  - Post procedural complication [None]
  - Biliary tract disorder [Recovered/Resolved]
